FAERS Safety Report 14341947 (Version 1)
Quarter: 2018Q1

REPORT INFORMATION
  Report Type: Spontaneous
  Country: JP (occurrence: JP)
  Receive Date: 20180102
  Receipt Date: 20180102
  Transmission Date: 20180509
  Serious: Yes (Hospitalization, Other)
  Sender: FDA-Public Use
  Company Number: PHJP2017JP037472

PATIENT
  Age: 93 Year
  Sex: Female
  Weight: 35 kg

DRUGS (2)
  1. EXELON PATCH [Suspect]
     Active Substance: RIVASTIGMINE
     Dosage: PATCH 10 (CM2), UNK
     Route: 062
  2. EXELON PATCH [Suspect]
     Active Substance: RIVASTIGMINE
     Indication: PRODUCT USED FOR UNKNOWN INDICATION
     Dosage: PATCH 7.5 (CM2), UNK
     Route: 062

REACTIONS (4)
  - Anger [Unknown]
  - Aggression [Unknown]
  - Urinary tract infection [Unknown]
  - Angina pectoris [Unknown]
